FAERS Safety Report 4683374-6 (Version None)
Quarter: 2005Q2

REPORT INFORMATION
  Report Type: 
  Country: None (occurrence: None)
  Receive Date: 20050606
  Receipt Date: 20050606
  Transmission Date: 20051028
  Serious: Yes (Hospitalization)
  Sender: FDA-Public Use
  Company Number: None

PATIENT
  Age: 57 Year
  Sex: Female
  Weight: 120.5 kg

DRUGS (2)
  1. FUROSEMIDE [Suspect]
     Indication: HYPERTENSION
     Dosage: 40 MG BID INTRAVENOU
     Route: 042
  2. ENALAPRIL 2.5 MG [Suspect]
     Indication: HYPERTENSION
     Dosage: 2.5 MG BID ORAL
     Route: 048

REACTIONS (1)
  - UNEVALUABLE EVENT [None]
